FAERS Safety Report 21860958 (Version 1)
Quarter: 2023Q1

REPORT INFORMATION
  Report Type: Spontaneous
  Country: US (occurrence: None)
  Receive Date: 20230113
  Receipt Date: 20230113
  Transmission Date: 20230418
  Serious: Yes (Disabling, Other)
  Sender: FDA-Public Use
  Company Number: None

PATIENT
  Age: 29 Year
  Sex: Female
  Weight: 67.5 kg

DRUGS (4)
  1. CIPROFLOXACIN [Suspect]
     Active Substance: CIPROFLOXACIN
     Indication: Urinary tract infection
     Dosage: FREQUENCY : TWICE A DAY;?
     Route: 048
     Dates: start: 20221121, end: 20221123
  2. LEVOTHYROXINE [Concomitant]
     Active Substance: LEVOTHYROXINE
  3. VITAMIN D3 [Concomitant]
     Active Substance: CHOLECALCIFEROL
  4. VITAMINS [Concomitant]
     Active Substance: VITAMINS

REACTIONS (6)
  - Neuropathy peripheral [None]
  - Arthralgia [None]
  - Tendon pain [None]
  - Muscle twitching [None]
  - Muscle spasms [None]
  - Tendon pain [None]

NARRATIVE: CASE EVENT DATE: 20221123
